FAERS Safety Report 5892254-X (Version None)
Quarter: 2008Q3

REPORT INFORMATION
  Report Type: 
  Country: None (occurrence: None)
  Receive Date: 20080919
  Receipt Date: 20080829
  Transmission Date: 20090109
  Serious: Yes (Hospitalization)
  Sender: FDA-Public Use
  Company Number: BEN-2008-013

PATIENT
  Age: 48 Year
  Sex: Male

DRUGS (2)
  1. BENTYL [Suspect]
     Indication: ABDOMINAL PAIN
     Dosage: 20 MG (2 ML), 1 DOSE, IV
     Route: 042
     Dates: start: 20080829
  2. BENTYL [Suspect]
     Indication: VOMITING
     Dosage: 20 MG (2 ML), 1 DOSE, IV
     Route: 042
     Dates: start: 20080829

REACTIONS (3)
  - DRUG INEFFECTIVE [None]
  - INCORRECT ROUTE OF DRUG ADMINISTRATION [None]
  - URINARY TRACT INFECTION [None]
